FAERS Safety Report 10265617 (Version 1)
Quarter: 2014Q2

REPORT INFORMATION
  Report Type: Spontaneous
  Country: US (occurrence: None)
  Receive Date: 20140625
  Receipt Date: 20140625
  Transmission Date: 20141212
  Serious: Yes (Death, Life-Threatening, Disabling)
  Sender: FDA-Public Use
  Company Number: None

PATIENT
  Age: 60 Year
  Sex: Male
  Weight: 78.47 kg

DRUGS (1)
  1. VOTRIENT [Suspect]
     Indication: RENAL CELL CARCINOMA
     Dosage: 4 PILLS ONCE DAILY TAKEN BY MOUTH
     Route: 048
     Dates: start: 20140305, end: 20140408

REACTIONS (36)
  - Nausea [None]
  - No therapeutic response [None]
  - Decreased appetite [None]
  - Insomnia [None]
  - Dry mouth [None]
  - Pain [None]
  - Depression [None]
  - Influenza like illness [None]
  - Abdominal pain upper [None]
  - Vomiting [None]
  - Neck pain [None]
  - Musculoskeletal stiffness [None]
  - Carotid artery occlusion [None]
  - Thrombotic stroke [None]
  - Muscle twitching [None]
  - Disorientation [None]
  - Renal infarct [None]
  - Splenic infarction [None]
  - Lung disorder [None]
  - Ventricular extrasystoles [None]
  - Confusional state [None]
  - Myocardial infarction [None]
  - Vascular occlusion [None]
  - Urinary tract infection [None]
  - Escherichia infection [None]
  - Haemoglobin decreased [None]
  - Intra-abdominal haemorrhage [None]
  - Blood pressure decreased [None]
  - Thrombotic thrombocytopenic purpura [None]
  - Peripheral artery thrombosis [None]
  - Endocarditis [None]
  - Pulmonary haemorrhage [None]
  - Coronary artery disease [None]
  - Septic embolus [None]
  - Cardiac failure [None]
  - Unevaluable event [None]
